FAERS Safety Report 9198556 (Version 2)
Quarter: 2013Q2

REPORT INFORMATION
  Report Type: Spontaneous
  Country: FI (occurrence: FI)
  Receive Date: 20130329
  Receipt Date: 20130619
  Transmission Date: 20140414
  Serious: Yes (Hospitalization)
  Sender: FDA-Public Use
  Company Number: FI-ELI_LILLY_AND_COMPANY-FI201303006804

PATIENT
  Age: 71 Year
  Sex: Female

DRUGS (17)
  1. FORSTEO [Suspect]
     Indication: OSTEOPOROSIS
     Dosage: 20 UG, QD
     Route: 058
     Dates: start: 201112
  2. SERETIDE [Concomitant]
     Indication: ASTHMA
  3. SINGULAIR [Concomitant]
     Indication: ASTHMA
  4. SPIRIVA [Concomitant]
     Indication: ASTHMA
  5. BRICANYL [Concomitant]
     Indication: ASTHMA
  6. METROL                             /00376902/ [Concomitant]
     Indication: ASTHMA
  7. IPRAMOL [Concomitant]
     Indication: ASTHMA
  8. RACEPINEPHRINE HYDROCHLORIDE [Concomitant]
     Indication: ASTHMA
  9. PULMICORT [Concomitant]
     Indication: ASTHMA
  10. AMLODIPIN                          /00972401/ [Concomitant]
     Indication: HYPERTENSION
  11. LOSATRIX [Concomitant]
     Indication: HYPERTENSION
  12. EMCONCOR [Concomitant]
     Indication: HYPERTENSION
  13. MAREVAN [Concomitant]
  14. SIMVASTATIN [Concomitant]
     Indication: BLOOD CHOLESTEROL
  15. PANADOL [Concomitant]
     Indication: PAIN
  16. CALCI CHEW D3 [Concomitant]
  17. ARCOXIA [Concomitant]
     Indication: PAIN

REACTIONS (2)
  - Spinal fracture [Recovering/Resolving]
  - Fall [Recovering/Resolving]
